FAERS Safety Report 4547055-1 (Version None)
Quarter: 2005Q1

REPORT INFORMATION
  Report Type: 
  Country: None (occurrence: None)
  Receive Date: 20050107
  Receipt Date: 20050105
  Transmission Date: 20050727
  Serious: Yes (Hospitalization)
  Sender: FDA-Public Use
  Company Number: PHBS2005CH00492

PATIENT
  Age: 21 Year
  Sex: Male

DRUGS (4)
  1. LEPONEX [Suspect]
     Indication: SCHIZOPHRENIA
     Dosage: 250 MG/DAY
     Route: 048
     Dates: start: 20040401, end: 20040920
  2. LEPONEX [Suspect]
     Dosage: 50 MG/DAY
     Dates: start: 20040921
  3. FLOXYFRAL [Suspect]
     Dosage: 100 MG/DAY
     Route: 048
     Dates: start: 20040401, end: 20040920
  4. FLOXYFRAL [Suspect]
     Dosage: 300 MG/DAY
     Route: 048
     Dates: start: 20040921, end: 20041012

REACTIONS (12)
  - ABNORMAL DREAMS [None]
  - AGITATION [None]
  - ANXIETY [None]
  - DEPRESSED LEVEL OF CONSCIOUSNESS [None]
  - DIARRHOEA [None]
  - DIZZINESS [None]
  - DRUG LEVEL ABOVE THERAPEUTIC [None]
  - HYPERHIDROSIS [None]
  - HYPERREFLEXIA [None]
  - NIGHTMARE [None]
  - SEROTONIN SYNDROME [None]
  - SOMNOLENCE [None]
